FAERS Safety Report 18542540 (Version 2)
Quarter: 2020Q4

REPORT INFORMATION
  Report Type: Spontaneous
  Country: US (occurrence: US)
  Receive Date: 20201124
  Receipt Date: 20201204
  Transmission Date: 20210114
  Serious: No
  Sender: FDA-Public Use
  Company Number: US-TAKEDA-2020TUS050823

PATIENT
  Age: 48 Year
  Sex: Female
  Weight: 109.75 kg

DRUGS (1)
  1. ENTYVIO [Suspect]
     Active Substance: VEDOLIZUMAB
     Indication: COLITIS ULCERATIVE
     Dosage: 300 MILLIGRAM, Q4WEEKS
     Route: 042
     Dates: start: 201907

REACTIONS (2)
  - Off label use [Unknown]
  - Mouth ulceration [Unknown]

NARRATIVE: CASE EVENT DATE: 201907
